FAERS Safety Report 13784362 (Version 1)
Quarter: 2017Q3

REPORT INFORMATION
  Report Type: Spontaneous
  Country: US (occurrence: US)
  Receive Date: 20170724
  Receipt Date: 20170724
  Transmission Date: 20171127
  Serious: Yes (Hospitalization)
  Sender: FDA-Public Use
  Company Number: PHHY2017US105582

PATIENT
  Age: 56 Year
  Sex: Female

DRUGS (1)
  1. THIAMAZOLE [Suspect]
     Active Substance: METHIMAZOLE
     Indication: BASEDOW^S DISEASE
     Route: 065

REACTIONS (9)
  - Jaundice [Unknown]
  - Drug-induced liver injury [Recovered/Resolved]
  - Renal tubular necrosis [Recovered/Resolved]
  - Cholestasis [Recovered/Resolved]
  - Nephropathy [Recovered/Resolved]
  - Hepatotoxicity [Recovered/Resolved]
  - Inflammation [Recovered/Resolved]
  - Hyperthyroidism [Unknown]
  - Pruritus [Recovered/Resolved]
